FAERS Safety Report 8522021 (Version 6)
Quarter: 2015Q2

REPORT INFORMATION
  Report Type: Spontaneous
  Country: US (occurrence: US)
  Receive Date: 20120419
  Receipt Date: 20150529
  Transmission Date: 20150821
  Serious: Yes (Hospitalization, Other)
  Sender: FDA-Public Use
  Company Number: US-ASTRAZENECA-2012SE23797

PATIENT
  Age: 59 Year
  Sex: Female
  Weight: 72.6 kg

DRUGS (6)
  1. NEXIUM [Suspect]
     Active Substance: ESOMEPRAZOLE MAGNESIUM
     Indication: HIATUS HERNIA
     Route: 048
     Dates: start: 2003
  2. CRESTOR [Suspect]
     Active Substance: ROSUVASTATIN CALCIUM
     Route: 048
  3. NEXIUM [Suspect]
     Active Substance: ESOMEPRAZOLE MAGNESIUM
     Indication: GASTROOESOPHAGEAL REFLUX DISEASE
     Route: 048
     Dates: start: 2003
  4. NEXIUM [Suspect]
     Active Substance: ESOMEPRAZOLE MAGNESIUM
     Indication: GASTROOESOPHAGEAL REFLUX DISEASE
     Dosage: UNKNOWN DOSE DAILY
     Route: 048
     Dates: end: 2003
  5. PULMICORT FLEXHALER [Concomitant]
     Active Substance: BUDESONIDE
     Route: 055
  6. NEXIUM [Suspect]
     Active Substance: ESOMEPRAZOLE MAGNESIUM
     Indication: HIATUS HERNIA
     Dosage: UNKNOWN DOSE DAILY
     Route: 048
     Dates: end: 2003

REACTIONS (24)
  - Respiratory moniliasis [Unknown]
  - Dysphonia [Unknown]
  - Off label use [Unknown]
  - Traumatic lung injury [Unknown]
  - Hiatus hernia [Unknown]
  - Blood cholesterol increased [Unknown]
  - Malaise [Unknown]
  - Vomiting [Unknown]
  - Drug dose omission [Unknown]
  - Aspiration [Unknown]
  - Paranoia [Unknown]
  - Regurgitation [Unknown]
  - Road traffic accident [Unknown]
  - Barrett^s oesophagus [Unknown]
  - Intentional product misuse [Unknown]
  - Asthma [Unknown]
  - Gastrooesophageal reflux disease [Unknown]
  - Cough [Unknown]
  - Erosive oesophagitis [Unknown]
  - Product use issue [Unknown]
  - Oropharyngeal candidiasis [Unknown]
  - Hernia [Unknown]
  - Gastric disorder [Unknown]
  - Memory impairment [Unknown]

NARRATIVE: CASE EVENT DATE: 2003
